FAERS Safety Report 14944814 (Version 1)
Quarter: 2018Q2

REPORT INFORMATION
  Report Type: Spontaneous
  Country: FR (occurrence: FR)
  Receive Date: 20180529
  Receipt Date: 20180529
  Transmission Date: 20180711
  Serious: Yes (Hospitalization)
  Sender: FDA-Public Use
  Company Number: FR-TEVA-2018-FR-898915

PATIENT
  Age: 71 Year
  Sex: Male

DRUGS (7)
  1. TAVANIC [Suspect]
     Active Substance: LEVOFLOXACIN
     Indication: DEVICE RELATED INFECTION
     Dosage: 3 GRAM DAILY;
     Route: 048
     Dates: start: 20180106, end: 20180129
  2. AMIKACINE MYLAN [Suspect]
     Active Substance: AMIKACIN
     Indication: DEVICE RELATED INFECTION
     Dosage: 500 MILLIGRAM DAILY;
     Route: 042
     Dates: start: 20180106, end: 20180109
  3. VANCOMYCIN [Suspect]
     Active Substance: VANCOMYCIN
     Indication: DEVICE RELATED INFECTION
     Dosage: 1 GRAM DAILY;
     Route: 042
     Dates: start: 20180106, end: 20180119
  4. PREVISCAN (FLUINDIONE) [Concomitant]
     Active Substance: FLUINDIONE
     Indication: ATRIAL FIBRILLATION
     Dosage: 20 MILLIGRAM DAILY;
     Route: 048
     Dates: end: 20180215
  5. DILTIAZEM (CHLORHYDRATE DE) [Concomitant]
     Indication: HYPERTENSION
     Dosage: 180 MILLIGRAM DAILY;
     Route: 048
     Dates: end: 20180201
  6. LASILIX [Concomitant]
     Active Substance: FUROSEMIDE
     Indication: FLUID RETENTION
     Dosage: 125 MILLIGRAM DAILY;
     Route: 042
     Dates: start: 201712, end: 201712
  7. CLAFORAN [Suspect]
     Active Substance: CEFOTAXIME SODIUM
     Indication: DEVICE RELATED INFECTION
     Dosage: 2.5 GRAM DAILY;
     Route: 042
     Dates: start: 20180106, end: 20180129

REACTIONS (2)
  - Acute kidney injury [Recovered/Resolved]
  - Toxic skin eruption [Recovered/Resolved]

NARRATIVE: CASE EVENT DATE: 20180110
